FAERS Safety Report 17423409 (Version 2)
Quarter: 2020Q1

REPORT INFORMATION
  Report Type: Spontaneous
  Country: US (occurrence: US)
  Receive Date: 20200217
  Receipt Date: 20200305
  Transmission Date: 20200409
  Serious: Yes (Other)
  Sender: FDA-Public Use
  Company Number: US-AUROBINDO-AUR-APL-2020-007456

PATIENT
  Sex: Female

DRUGS (2)
  1. VALACYCLOVIR HYDROCHLORIDE TABLETS 1G [Suspect]
     Active Substance: VALACYCLOVIR HYDROCHLORIDE
     Indication: HERPES ZOSTER
     Dosage: 1 GRAM, ONCE A DAY
     Route: 065
  2. VALACYCLOVIR HYDROCHLORIDE TABLETS 1G [Suspect]
     Active Substance: VALACYCLOVIR HYDROCHLORIDE
     Dosage: UNK,DOSE DECREASED
     Route: 065
     Dates: start: 201907, end: 201911

REACTIONS (4)
  - Product use issue [Unknown]
  - Drug dependence [Unknown]
  - Incorrect dose administered [Unknown]
  - Herpes zoster [Unknown]

NARRATIVE: CASE EVENT DATE: 201912
